FAERS Safety Report 8791159 (Version 1)
Quarter: 2012Q4

REPORT INFORMATION
  Report Type: Spontaneous
  Country: US (occurrence: None)
  Receive Date: 20120913
  Receipt Date: 20120913
  Transmission Date: 20130627
  Serious: Yes (Other)
  Sender: FDA-Public Use
  Company Number: None

PATIENT
  Age: 74 Year
  Sex: Female
  Weight: 90.72 kg

DRUGS (5)
  1. NYSTATIN [Suspect]
     Indication: YEAST INFECTION
     Dosage: 100,000 units per gram 2x daily dusting on skin
     Route: 062
     Dates: start: 20120806
  2. SERTRALINE [Concomitant]
  3. DICLOFENAC [Concomitant]
  4. CYANOCOBALAMIN [Concomitant]
  5. SYNTHROID [Concomitant]

REACTIONS (2)
  - Rash erythematous [None]
  - Product substitution issue [None]
